FAERS Safety Report 6066572-9 (Version None)
Quarter: 2009Q1

REPORT INFORMATION
  Report Type: 
  Country: None (occurrence: None)
  Receive Date: 20090205
  Receipt Date: 20090129
  Transmission Date: 20090719
  Serious: Yes (Hospitalization)
  Sender: FDA-Public Use
  Company Number: A0765675A

PATIENT
  Age: 41 Year
  Sex: Male

DRUGS (4)
  1. CARVEDILOL [Suspect]
     Indication: DRUG USE FOR UNKNOWN INDICATION
     Route: 048
  2. LASIX [Concomitant]
  3. ALPRAZOLAM [Concomitant]
  4. NORVASC [Concomitant]

REACTIONS (9)
  - BLOOD PRESSURE [None]
  - DRUG INEFFECTIVE [None]
  - FEAR [None]
  - HEART RATE INCREASED [None]
  - IRRITABILITY [None]
  - MALAISE [None]
  - MENTAL IMPAIRMENT [None]
  - NAUSEA [None]
  - TACHYCARDIA [None]
